FAERS Safety Report 6872792 (Version 5)
Quarter: 2013Q2

REPORT INFORMATION
  Report Type: Report from Study
  Country: US (occurrence: US)
  Receive Date: 20090105
  Receipt Date: 20130618
  Transmission Date: 20140414
  Serious: Yes (Hospitalization)
  Sender: FDA-Public Use
  Company Number: US-BRISTOL-MYERS SQUIBB COMPANY-14457568

PATIENT
  Age: 80 Year
  Sex: Male
  Weight: 93.2 kg

DRUGS (3)
  1. ERBITUX [Suspect]
     Indication: OESOPHAGEAL CARCINOMA
     Dosage: START OF FIRST COURSE:02DEC08 LAST DOSE-2466MG ON 23-DEC-2008
     Dates: start: 20081202
  2. TAXOL [Suspect]
     Indication: OESOPHAGEAL CARCINOMA
     Dosage: START OF FIRST COURSE:02DEC08 LAST DOSE-424MG ON 23-DEC-2008
     Dates: start: 20081202
  3. CISPLATIN [Suspect]
     Indication: OESOPHAGEAL CARCINOMA
     Dosage: START OF FIRST COURSE:02DEC08 LAST DOSE-214MG ON 23-DEC-2008
     Dates: start: 20081202

REACTIONS (5)
  - Dehydration [Not Recovered/Not Resolved]
  - Peripheral motor neuropathy [Recovered/Resolved]
  - Hyponatraemia [Recovered/Resolved]
  - Wound dehiscence [Not Recovered/Not Resolved]
  - White blood cell count decreased [Recovered/Resolved]
